FAERS Safety Report 24888481 (Version 1)
Quarter: 2025Q1

REPORT INFORMATION
  Report Type: Spontaneous
  Country: CA (occurrence: CA)
  Receive Date: 20250127
  Receipt Date: 20250127
  Transmission Date: 20250408
  Serious: Yes (Hospitalization, Other)
  Sender: ACCORD
  Company Number: None

PATIENT
  Age: 53 Year
  Sex: Female

DRUGS (12)
  1. QUETIAPINE FUMARATE [Suspect]
     Active Substance: QUETIAPINE FUMARATE
     Indication: Schizoaffective disorder
     Route: 048
  2. SERTRALINE HYDROCHLORIDE [Suspect]
     Active Substance: SERTRALINE HYDROCHLORIDE
     Indication: Schizoaffective disorder
     Route: 065
  3. CLOZAPINE [Suspect]
     Active Substance: CLOZAPINE
     Indication: Schizoaffective disorder
     Route: 065
  4. LORAZEPAM [Suspect]
     Active Substance: LORAZEPAM
     Indication: Schizoaffective disorder
     Route: 065
  5. PERPHENAZINE [Suspect]
     Active Substance: PERPHENAZINE
     Indication: Schizoaffective disorder
     Route: 065
  6. CHLORPROMAZINE [Suspect]
     Active Substance: CHLORPROMAZINE
     Indication: Major depression
  7. HALOPERIDOL DECANOATE [Suspect]
     Active Substance: HALOPERIDOL DECANOATE
     Indication: Major depression
  8. OLANZAPINE [Suspect]
     Active Substance: OLANZAPINE
     Indication: Major depression
  9. THIORIDAZINE [Suspect]
     Active Substance: THIORIDAZINE
     Indication: Major depression
     Route: 048
  10. CLOZAPINE [Suspect]
     Active Substance: CLOZAPINE
     Indication: Schizoaffective disorder
     Route: 065
  11. CLOZAPINE [Suspect]
     Active Substance: CLOZAPINE
     Indication: Schizoaffective disorder
     Route: 065
  12. CLOZAPINE [Suspect]
     Active Substance: CLOZAPINE
     Indication: Schizoaffective disorder
     Route: 065

REACTIONS (13)
  - Hyponatraemia [Recovering/Resolving]
  - Parkinsonism [Recovering/Resolving]
  - Dyskinesia [Recovering/Resolving]
  - Polydipsia [Recovering/Resolving]
  - Head titubation [Recovering/Resolving]
  - Seizure [Recovering/Resolving]
  - Tremor [Recovering/Resolving]
  - Dystonia [Recovering/Resolving]
  - Myoclonus [Recovering/Resolving]
  - Tardive dyskinesia [Recovering/Resolving]
  - Drug ineffective [Recovering/Resolving]
  - Apraxia [Recovering/Resolving]
  - Movement disorder [Recovering/Resolving]
